FAERS Safety Report 8267356-3 (Version None)
Quarter: 2012Q2

REPORT INFORMATION
  Report Type: 
  Country: None (occurrence: None)
  Receive Date: 20120409
  Receipt Date: 20120330
  Transmission Date: 20120825
  Serious: Yes (Hospitalization, Other)
  Sender: FDA-Public Use
  Company Number: PHHY2012BR028183

PATIENT
  Age: 77 Year
  Sex: Female

DRUGS (1)
  1. EXFORGE HCT [Suspect]
     Indication: HYPERTENSION
     Dosage: 1 DF (160/12.5/5MG) DAILY

REACTIONS (4)
  - OCULAR VASCULAR DISORDER [None]
  - CATARACT [None]
  - EYEBALL RUPTURE [None]
  - BLINDNESS [None]
